FAERS Safety Report 19331135 (Version 2)
Quarter: 2021Q2

REPORT INFORMATION
  Report Type: Report from Study
  Country: GB (occurrence: GB)
  Receive Date: 20210528
  Receipt Date: 20210616
  Transmission Date: 20210717
  Serious: Yes (Other)
  Sender: FDA-Public Use
  Company Number: NVSC2021GB114535

PATIENT
  Age: 57 Year
  Sex: Female

DRUGS (1)
  1. ERELZI [Suspect]
     Active Substance: ETANERCEPT-SZZS
     Indication: RHEUMATOID ARTHRITIS
     Dosage: 50 MG, QW
     Route: 058
     Dates: start: 20181119

REACTIONS (6)
  - Pain [Unknown]
  - Cystitis [Unknown]
  - Urinary tract infection [Unknown]
  - Product dose omission issue [Unknown]
  - General physical health deterioration [Unknown]
  - Kidney infection [Unknown]
